FAERS Safety Report 12537263 (Version 2)
Quarter: 2016Q3

REPORT INFORMATION
  Report Type: Spontaneous
  Country: IT (occurrence: IT)
  Receive Date: 20160707
  Receipt Date: 20160715
  Transmission Date: 20161109
  Serious: Yes (Other)
  Sender: FDA-Public Use
  Company Number: IT-ACTAVIS-2016-14402

PATIENT
  Age: 68 Year
  Sex: Male

DRUGS (1)
  1. FINASTERIDE (UNKNOWN) [Suspect]
     Active Substance: FINASTERIDE
     Indication: BENIGN PROSTATIC HYPERPLASIA
     Dosage: UNK
     Route: 048
     Dates: start: 20160101, end: 20160620

REACTIONS (2)
  - Dysuria [Recovering/Resolving]
  - Strangury [Recovering/Resolving]

NARRATIVE: CASE EVENT DATE: 20160619
